APPROVED DRUG PRODUCT: ORAGRAFIN SODIUM
Active Ingredient: IPODATE SODIUM
Strength: 500MG
Dosage Form/Route: CAPSULE;ORAL
Application: N012967 | Product #001
Applicant: BRACCO DIAGNOSTICS INC
Approved: Approved Prior to Jan 1, 1982 | RLD: No | RS: No | Type: DISCN